FAERS Safety Report 4712499-1 (Version None)
Quarter: 2005Q2

REPORT INFORMATION
  Report Type: 
  Country: None (occurrence: None)
  Receive Date: 20050629
  Receipt Date: 20050308
  Transmission Date: 20051028
  Serious: No
  Sender: FDA-Public Use
  Company Number: 05P-163-0293245-00

PATIENT
  Age: 59 Year
  Sex: Female
  Weight: 72.5755 kg

DRUGS (6)
  1. HUMIRA [Suspect]
     Indication: RHEUMATOID ARTHRITIS
     Dosage: 40 MG, 1 IN 2 WK, SUBCUTANEOUS
     Route: 058
  2. DEXTROPROPOXYPHENE HYDROCHLORIDE [Concomitant]
  3. HYDROCHLOROTHIAZIDE [Concomitant]
  4. ZOLPIDEM TARTRATE [Concomitant]
  5. AMLODIPINE BESYLATE [Concomitant]
  6. HYDROCODONE BITARTRATE [Concomitant]

REACTIONS (1)
  - ALOPECIA [None]
